FAERS Safety Report 4735951-1 (Version None)
Quarter: 2005Q3

REPORT INFORMATION
  Report Type: 
  Country: None (occurrence: None)
  Receive Date: 20050805
  Receipt Date: 20050728
  Transmission Date: 20060218
  Serious: Yes (Hospitalization)
  Sender: FDA-Public Use
  Company Number: FR-ABBOTT-05P-056-0306955-00

PATIENT
  Age: 37 Year
  Sex: Male

DRUGS (2)
  1. DEPAKENE [Suspect]
     Indication: DRUG USE FOR UNKNOWN INDICATION
     Dosage: 500 MG
     Route: 048
     Dates: start: 20000101, end: 20050518
  2. IBUPROFEN TABLETS [Suspect]
     Indication: CHEST PAIN
     Dates: start: 20050505, end: 20050518

REACTIONS (16)
  - ATRIAL FIBRILLATION [None]
  - ATROPHY OF TONGUE PAPILLAE [None]
  - CHEILITIS [None]
  - CHEST PAIN [None]
  - CONJUNCTIVITIS [None]
  - DRUG HYPERSENSITIVITY [None]
  - DYSURIA [None]
  - EPILEPSY [None]
  - ERYTHEMA [None]
  - GLOSSODYNIA [None]
  - ORAL PAIN [None]
  - PHARYNGEAL ERYTHEMA [None]
  - PURPURA [None]
  - SCROTAL ERYTHEMA [None]
  - SKIN EXFOLIATION [None]
  - URETHRAL DISORDER [None]
